FAERS Safety Report 23931387 (Version 1)
Quarter: 2024Q2

REPORT INFORMATION
  Report Type: Spontaneous
  Country: US (occurrence: US)
  Receive Date: 20240603
  Receipt Date: 20240603
  Transmission Date: 20240716
  Serious: No
  Sender: FDA-Public Use
  Company Number: US-STRIDES ARCOLAB LIMITED-2024SP000500

PATIENT
  Age: 63 Year
  Sex: Female

DRUGS (2)
  1. VANCOMYCIN [Suspect]
     Active Substance: VANCOMYCIN
     Indication: Arthritis infective
     Dosage: UNK
     Route: 065
  2. CALCIUM SULFATE [Concomitant]
     Active Substance: CALCIUM SULFATE
     Indication: Arthritis infective
     Dosage: UNK (30CC CALCIUM SULFATE BEADS)
     Route: 065

REACTIONS (1)
  - Off label use [Unknown]
